FAERS Safety Report 5289216-2 (Version None)
Quarter: 2007Q1

REPORT INFORMATION
  Report Type: 
  Country: None (occurrence: None)
  Receive Date: 20070118
  Receipt Date: 20061218
  Transmission Date: 20070707
  Serious: Yes (Other)
  Sender: FDA-Public Use
  Company Number: HQWYE724420DEC06

PATIENT
  Age: 80 Year
  Sex: Female
  Weight: 49.94 kg

DRUGS (4)
  1. ADVIL PM [Suspect]
     Indication: INSOMNIA
     Dosage: 1 TABLET X 1, ORAL
     Route: 048
     Dates: start: 20061217, end: 20061217
  2. ADVICOR [Concomitant]
  3. AVAPRO [Concomitant]
  4. VERAPAMIL [Concomitant]

REACTIONS (1)
  - DRUG EFFECT DECREASED [None]
